FAERS Safety Report 6639716-5 (Version None)
Quarter: 2010Q1

REPORT INFORMATION
  Report Type: 
  Country: None (occurrence: None)
  Receive Date: 20100318
  Receipt Date: 20100305
  Transmission Date: 20100710
  Serious: Yes (Other)
  Sender: FDA-Public Use
  Company Number: PHEH2006US10878

PATIENT
  Sex: Male

DRUGS (8)
  1. ZOMETA [Suspect]
  2. MELPHALAN HYDROCHLORIDE [Concomitant]
  3. PREDNISONE [Concomitant]
  4. CYTOXAN [Concomitant]
  5. HYDROCHLOROTHIAZIDE [Concomitant]
  6. THALIDOMIDE [Concomitant]
  7. DEXAMETHASONE [Concomitant]
  8. NEURONTIN [Concomitant]

REACTIONS (7)
  - ANXIETY [None]
  - INJURY [None]
  - OSTEOMYELITIS [None]
  - OSTEONECROSIS [None]
  - PAIN [None]
  - POOR DENTAL CONDITION [None]
  - SPINAL CORPECTOMY [None]
